FAERS Safety Report 9952634 (Version 1)
Quarter: 2014Q1

REPORT INFORMATION
  Report Type: Report from Study
  Country: US (occurrence: US)
  Receive Date: 20140304
  Receipt Date: 20140304
  Transmission Date: 20141002
  Serious: No
  Sender: FDA-Public Use
  Company Number: US-ABBVIE-13P-163-1074110-00

PATIENT
  Sex: Female

DRUGS (3)
  1. HUMIRA [Suspect]
     Indication: CROHN^S DISEASE
     Route: 058
     Dates: start: 201112
  2. INTRON-A [Concomitant]
     Indication: PLATELET COUNT INCREASED
     Dates: start: 2002
  3. PRENATAL VITAMINS [Concomitant]
     Indication: PREGNANCY
     Dates: start: 201208

REACTIONS (3)
  - Vomiting in pregnancy [Recovered/Resolved]
  - Nausea [Recovered/Resolved]
  - Vomiting [Recovered/Resolved]
